FAERS Safety Report 8383938-2 (Version None)
Quarter: 2012Q2

REPORT INFORMATION
  Report Type: 
  Country: None (occurrence: None)
  Receive Date: 20120524
  Receipt Date: 20120514
  Transmission Date: 20120825
  Serious: Yes (Hospitalization)
  Sender: FDA-Public Use
  Company Number: AT-TEVA-338105ISR

PATIENT
  Age: 21 Year
  Sex: Male

DRUGS (11)
  1. ETANERCEPT [Suspect]
     Indication: HIDRADENITIS
     Dosage: 50 MG/WEEK
     Route: 058
  2. DAPSONE [Suspect]
     Indication: HIDRADENITIS
     Route: 048
  3. AMPICILLIN [Suspect]
     Route: 042
  4. CLINDAMYCIN [Suspect]
     Indication: BACTERIAL INFECTION
     Route: 042
  5. DEXAMETHASONE [Suspect]
     Route: 042
  6. DORIPENEM [Suspect]
     Indication: BACTERAEMIA
     Route: 042
  7. INFLIXIMAB [Suspect]
     Indication: HIDRADENITIS
     Dosage: 5 MG/KG BODY WEIGHT
     Route: 042
  8. MOXIFLOXACIN [Suspect]
     Indication: BACTERIAL INFECTION
     Route: 048
  9. FOSFOMYCIN [Suspect]
     Route: 042
  10. LINEZOLID [Suspect]
     Route: 042
  11. CEFOTAXIME [Suspect]
     Route: 042

REACTIONS (9)
  - BACTERAEMIA [None]
  - METHAEMOGLOBINAEMIA [None]
  - HERPES ZOSTER [None]
  - THROMBOCYTOPENIA [None]
  - BRAIN ABSCESS [None]
  - PYREXIA [None]
  - PANCYTOPENIA [None]
  - CANDIDIASIS [None]
  - CEREBRAL THROMBOSIS [None]
